FAERS Safety Report 12838304 (Version 1)
Quarter: 2016Q4

REPORT INFORMATION
  Report Type: Spontaneous
  Country: US (occurrence: US)
  Receive Date: 20161010
  Receipt Date: 20161010
  Transmission Date: 20170207
  Serious: Yes (Hospitalization)
  Sender: FDA-Public Use
  Company Number: None

PATIENT
  Age: 51 Year
  Sex: Male
  Weight: 143.6 kg

DRUGS (22)
  1. ALBUTEROL. [Suspect]
     Active Substance: ALBUTEROL
  2. ALBUMIN [Concomitant]
     Active Substance: ALBUMIN HUMAN
  3. SOFOSBUVIR 400MG GILEAD [Suspect]
     Active Substance: SOFOSBUVIR
     Indication: HEPATITIS C
     Route: 048
     Dates: start: 20160630
  4. DACLATASVIR 60MG BRISTOL MYERS SQUIBBS [Suspect]
     Active Substance: DACLATASVIR
     Indication: HEPATITIS C
     Route: 048
     Dates: start: 20160630
  5. ALDACTONE [Concomitant]
     Active Substance: SPIRONOLACTONE
  6. FENTANYL. [Concomitant]
     Active Substance: FENTANYL
  7. CYMBALTA [Concomitant]
     Active Substance: DULOXETINE HYDROCHLORIDE
  8. POTASSIUM CHLORIDE. [Concomitant]
     Active Substance: POTASSIUM CHLORIDE
  9. PROPRANOLOL [Concomitant]
     Active Substance: PROPRANOLOL\PROPRANOLOL HYDROCHLORIDE
  10. FUROSEMIDE. [Concomitant]
     Active Substance: FUROSEMIDE
  11. KRISTALOSE [Concomitant]
     Active Substance: LACTULOSE
  12. BUMEX [Concomitant]
     Active Substance: BUMETANIDE
  13. XIFAXAN [Concomitant]
     Active Substance: RIFAXIMIN
  14. DITROPAN [Concomitant]
     Active Substance: OXYBUTYNIN CHLORIDE
  15. PROTONIX [Concomitant]
     Active Substance: PANTOPRAZOLE SODIUM
  16. BUFESONIDE [Concomitant]
  17. CIPRO [Concomitant]
     Active Substance: CIPROFLOXACIN HYDROCHLORIDE
  18. SYMBICORT [Concomitant]
     Active Substance: BUDESONIDE\FORMOTEROL FUMARATE DIHYDRATE
  19. ALBUTEROL. [Concomitant]
     Active Substance: ALBUTEROL
  20. LACTULOSE. [Concomitant]
     Active Substance: LACTULOSE
  21. ZAROXOLYN [Concomitant]
     Active Substance: METOLAZONE
  22. REXICODONE [Concomitant]

REACTIONS (5)
  - Blood creatine increased [None]
  - Hepatic encephalopathy [None]
  - Ascites [None]
  - Peritonitis bacterial [None]
  - Disease recurrence [None]

NARRATIVE: CASE EVENT DATE: 20160902
